FAERS Safety Report 5957476-8 (Version None)
Quarter: 2008Q4

REPORT INFORMATION
  Report Type: 
  Country: None (occurrence: None)
  Receive Date: 20081114
  Receipt Date: 20081103
  Transmission Date: 20090506
  Serious: Yes (Hospitalization)
  Sender: FDA-Public Use
  Company Number: 2008-186227-NL

PATIENT
  Age: 31 Year
  Sex: Female
  Weight: 109.3 kg

DRUGS (1)
  1. IMPLANON [Suspect]
     Indication: CONTRACEPTION
     Dosage: SUBDERMAL
     Route: 059
     Dates: start: 20070925

REACTIONS (5)
  - AMENORRHOEA [None]
  - BREAST TENDERNESS [None]
  - IMPLANT SITE PAIN [None]
  - MENORRHAGIA [None]
  - UTERINE LEIOMYOMA [None]
